FAERS Safety Report 9125220 (Version 4)
Quarter: 2014Q1

REPORT INFORMATION
  Report Type: Report from Study
  Country: JP (occurrence: JP)
  Receive Date: 20130227
  Receipt Date: 20140305
  Transmission Date: 20141002
  Serious: Yes (Life-Threatening)
  Sender: FDA-Public Use
  Company Number: JP-PFIZER INC-2013063683

PATIENT
  Age: 57 Year
  Sex: Female
  Weight: 45 kg

DRUGS (6)
  1. NOVASTAN [Suspect]
     Indication: HEPARIN-INDUCED THROMBOCYTOPENIA
     Dosage: 0.2 MCG/KG/MIN
     Route: 041
     Dates: start: 20130118, end: 20130119
  2. NOVASTAN [Suspect]
     Dosage: 0.8MCG/KG/MIN
     Route: 041
     Dates: start: 20130119, end: 20130215
  3. NOVASTAN [Suspect]
     Dosage: 1.2MCG/KG/MIN
     Route: 041
     Dates: start: 20130215, end: 20130326
  4. NOVASTAN [Suspect]
     Dosage: 1.8MCG/KG/MIN
     Route: 041
     Dates: start: 20130326
  5. HEPARIN SODIUM [Concomitant]
     Dosage: UNK
     Route: 051
     Dates: start: 20130108
  6. WARFARIN [Concomitant]
     Dosage: 3.5 MG
     Route: 048
     Dates: start: 20130318, end: 20130522

REACTIONS (2)
  - Platelet count decreased [Not Recovered/Not Resolved]
  - Petechiae [Unknown]
